FAERS Safety Report 21863529 (Version 1)
Quarter: 2023Q1

REPORT INFORMATION
  Report Type: Spontaneous
  Country: CN (occurrence: CN)
  Receive Date: 20230115
  Receipt Date: 20230115
  Transmission Date: 20230418
  Serious: Yes (Hospitalization, Other)
  Sender: FDA-Public Use
  Company Number: CN-MLMSERVICE-20230104-4020835-1

PATIENT
  Age: 57 Year
  Sex: Female

DRUGS (2)
  1. PACLITAXEL [Suspect]
     Active Substance: PACLITAXEL
     Indication: Small cell lung cancer extensive stage
  2. TORIPALIMAB [Concomitant]
     Active Substance: TORIPALIMAB
     Indication: Small cell lung cancer extensive stage

REACTIONS (3)
  - Brain natriuretic peptide increased [Unknown]
  - Cardiotoxicity [Unknown]
  - Off label use [Unknown]
